FAERS Safety Report 10253192 (Version 2)
Quarter: 2014Q3

REPORT INFORMATION
  Report Type: Report from Study
  Country: JP (occurrence: JP)
  Receive Date: 20140623
  Receipt Date: 20140801
  Transmission Date: 20150326
  Serious: Yes (Death, Other)
  Sender: FDA-Public Use
  Company Number: JP-BRISTOL-MYERS SQUIBB COMPANY-21048038

PATIENT

DRUGS (2)
  1. ANCARON [Interacting]
     Active Substance: AMIODARONE HYDROCHLORIDE
  2. ELIQUIS [Suspect]
     Active Substance: APIXABAN
     Dosage: TABLET
     Route: 048

REACTIONS (4)
  - Ventricular fibrillation [Fatal]
  - Drug interaction [Unknown]
  - Ventricular tachycardia [Fatal]
  - Electrocardiogram QT prolonged [Fatal]
